FAERS Safety Report 4448760-8 (Version None)
Quarter: 2004Q3

REPORT INFORMATION
  Report Type: 
  Country: None (occurrence: None)
  Receive Date: 20040909
  Receipt Date: 20040825
  Transmission Date: 20050211
  Serious: Yes (Hospitalization)
  Sender: FDA-Public Use
  Company Number: 208156

PATIENT
  Age: 39 Year
  Sex: Female

DRUGS (4)
  1. HERCEPTIN [Suspect]
     Indication: BREAST CANCER METASTATIC
     Dosage: 4 MG/KG, SINGLE, INTRAVENOUS
     Route: 042
     Dates: start: 20040701, end: 20040701
  2. CYCLOPHOSPHAMIDE [Suspect]
     Indication: BREAST CANCER METASTATIC
     Dates: start: 20040701
  3. 5-FLUOROURACHIL (FLUOROURACIL) [Suspect]
     Indication: BREAST CANCER METASTATIC
     Dosage: INTRAVENOUS
     Route: 042
     Dates: start: 20040701
  4. METHOTREXATE [Suspect]
     Indication: BREAST CANCER METASTATIC
     Dosage: 73 MG, INTRAVENOUS
     Route: 042
     Dates: start: 20040701

REACTIONS (3)
  - NEUTROPENIA [None]
  - STAPHYLOCOCCAL INFECTION [None]
  - WHITE BLOOD CELL COUNT DECREASED [None]
